FAERS Safety Report 24156479 (Version 1)
Quarter: 2024Q3

REPORT INFORMATION
  Report Type: Report from Study
  Country: AU (occurrence: AU)
  Receive Date: 20240731
  Receipt Date: 20240731
  Transmission Date: 20241017
  Serious: Yes (Other)
  Sender: REGENERON
  Company Number: AU-BAYER-2024A105773

PATIENT
  Sex: Female

DRUGS (1)
  1. EYLEA [Suspect]
     Active Substance: AFLIBERCEPT
     Indication: Neovascular age-related macular degeneration
     Dosage: UNK, 40 MG/ML,SOLUTION FOR INJECTION IN PRE-FILLED SYRINGE
     Dates: start: 20230601

REACTIONS (1)
  - Stress [Unknown]

NARRATIVE: CASE EVENT DATE: 20240720
